FAERS Safety Report 5057747-6 (Version None)
Quarter: 2006Q3

REPORT INFORMATION
  Report Type: 
  Country: None (occurrence: None)
  Receive Date: 20060721
  Receipt Date: 20060202
  Transmission Date: 20061208
  Serious: Yes (Other)
  Sender: FDA-Public Use
  Company Number: US-GLAXOSMITHKLINE-A0592131A

PATIENT
  Age: 78 Year
  Sex: Male

DRUGS (19)
  1. AVANDIA [Suspect]
     Dosage: 8MG PER DAY
     Route: 048
     Dates: start: 20050301, end: 20051201
  2. METFORMIN [Concomitant]
     Dates: end: 20060101
  3. GLYBURIDE [Concomitant]
  4. OMEPRAZOLE [Concomitant]
  5. TERAZOSIN HCL [Concomitant]
  6. FENOFIBRATE [Concomitant]
  7. FINASTERIDE [Concomitant]
  8. LISINOPRIL [Concomitant]
  9. SIMVASTATIN [Concomitant]
  10. MULTI-VITAMIN [Concomitant]
  11. ASPIRIN [Concomitant]
  12. CALCIUM WITH VITAMIN D [Concomitant]
  13. FOLIC ACID [Concomitant]
  14. SELENIUM SULFIDE [Concomitant]
  15. GINSENG [Concomitant]
  16. SAW PALMETTO [Concomitant]
  17. CALCIUM GLUCONATE [Concomitant]
  18. MAGNESIUM [Concomitant]
  19. ZINC [Concomitant]

REACTIONS (4)
  - BLOOD GLUCOSE INCREASED [None]
  - HYPOGLYCAEMIA [None]
  - SWELLING [None]
  - WEIGHT INCREASED [None]
